FAERS Safety Report 20867333 (Version 1)
Quarter: 2022Q2

REPORT INFORMATION
  Report Type: Spontaneous
  Country: DE (occurrence: DE)
  Receive Date: 20220524
  Receipt Date: 20220524
  Transmission Date: 20220720
  Serious: Yes (Other)
  Sender: FDA-Public Use
  Company Number: DE-PFIZER INC-202200735031

PATIENT
  Age: 68 Year
  Sex: Male

DRUGS (2)
  1. INLYTA [Suspect]
     Active Substance: AXITINIB
     Indication: Papillary renal cell carcinoma
     Dosage: 5 MG, 2X/DAY
     Dates: start: 20191217
  2. PEMBROLIZUMAB [Suspect]
     Active Substance: PEMBROLIZUMAB
     Indication: Papillary renal cell carcinoma
     Dosage: 400 MG, CYCLIC (EVERY SIX WEEKS)
     Dates: start: 20191217

REACTIONS (2)
  - Autoimmune colitis [Unknown]
  - Off label use [Unknown]
